FAERS Safety Report 4336184-3 (Version None)
Quarter: 2004Q2

REPORT INFORMATION
  Report Type: 
  Country: None (occurrence: None)
  Receive Date: 20040407
  Receipt Date: 20040329
  Transmission Date: 20050107
  Serious: Yes (Life-Threatening, Hospitalization, Other)
  Sender: FDA-Public Use
  Company Number: HQWYE713716APR03

PATIENT
  Age: 60 Year
  Sex: Male

DRUGS (9)
  1. AVLOCARDYL    (PROPRANOLOL HYDROCHLORIDE) [Suspect]
     Indication: ESSENTIAL HYPERTENSION
     Dosage: 40 MG 1X PER 1 DAY ORAL
     Route: 048
     Dates: start: 20020901, end: 20030225
  2. ALDACTONE [Suspect]
     Indication: ESSENTIAL HYPERTENSION
     Dosage: 75 MG 1X PER 1 DAY ORAL
     Route: 048
  3. DEXAMBUTOL (ETHAMBUTOL DIHYDROCHLORIDE, ) [Suspect]
     Indication: PERITONEAL TUBERCULOSIS
     Dosage: 500 MG 2X PER 1 DAY ORAL
     Route: 048
     Dates: start: 20020901, end: 20030225
  4. RIFAMPICIN [Suspect]
     Indication: PERITONEAL TUBERCULOSIS
     Dosage: 300 MG 2X PER 1 DAY ORAL
     Route: 048
     Dates: start: 20020901, end: 20030325
  5. RIMIFON [Suspect]
     Indication: PERITONEAL TUBERCULOSIS
     Dosage: 150 MG 1X PER 1 DAY ORAL
     Route: 048
     Dates: start: 20020901
  6. INSULIN [Concomitant]
  7. DUPHALAC [Concomitant]
  8. VITAMIN B1 AND B6 (PYRIDOXINE/THIAMINE) [Concomitant]
  9. PHYTONADIONE [Concomitant]

REACTIONS (2)
  - ASCITES [None]
  - IDIOPATHIC THROMBOCYTOPENIC PURPURA [None]
